FAERS Safety Report 6981982-0 (Version None)
Quarter: 2010Q3

REPORT INFORMATION
  Report Type: 
  Country: None (occurrence: None)
  Receive Date: 20100914
  Receipt Date: 20091123
  Transmission Date: 20110219
  Serious: Yes (Other)
  Sender: FDA-Public Use
  Company Number: US-PFIZER INC-2009285131

PATIENT
  Sex: Female
  Weight: 63.492 kg

DRUGS (6)
  1. LYRICA [Suspect]
     Indication: PAIN
     Dosage: 200 MG, 2X/DAY
     Dates: start: 20080901, end: 20091005
  2. LYRICA [Suspect]
     Indication: POST HERPETIC NEURALGIA
  3. PROMETHAZINE [Suspect]
     Indication: NAUSEA
     Dosage: 25MG EVERY 4 HOURS AS NEEDED
     Dates: start: 20091001, end: 20091001
  4. LIPITOR [Concomitant]
     Dosage: UNK
  5. GEMFIBROZIL [Concomitant]
     Dosage: UNK
  6. LISINOPRIL [Concomitant]
     Indication: HYPERTENSION
     Dosage: UNK

REACTIONS (6)
  - DRUG INEFFECTIVE [None]
  - FEELING JITTERY [None]
  - NAUSEA [None]
  - SWELLING [None]
  - WEIGHT DECREASED [None]
  - WEIGHT INCREASED [None]
